FAERS Safety Report 6938324-6 (Version None)
Quarter: 2010Q3

REPORT INFORMATION
  Report Type: 
  Country: None (occurrence: None)
  Receive Date: 20100824
  Receipt Date: 20100812
  Transmission Date: 20110219
  Serious: Yes (Other)
  Sender: FDA-Public Use
  Company Number: JP-PFIZER INC-2010009125

PATIENT
  Age: 55 Year
  Sex: Male
  Weight: 58 kg

DRUGS (5)
  1. SILDENAFIL CITRATE [Suspect]
     Indication: PULMONARY ARTERIAL HYPERTENSION
     Dosage: 20 MG, 3X/DAY
     Route: 048
     Dates: start: 20080609
  2. SILDENAFIL CITRATE [Suspect]
     Dosage: UNK
     Dates: start: 20070401, end: 20080608
  3. WARFARIN POTASSIUM [Concomitant]
     Indication: PULMONARY HYPERTENSION
     Dosage: UNK
     Route: 048
     Dates: start: 20090928
  4. PROCYLIN [Concomitant]
     Indication: PULMONARY HYPERTENSION
     Dosage: UNK
     Route: 048
     Dates: start: 20090928
  5. MYSLEE [Concomitant]
     Dosage: UNK
     Route: 048
     Dates: start: 20090928

REACTIONS (3)
  - BLOOD PRESSURE DECREASED [None]
  - OVERDOSE [None]
  - SUICIDE ATTEMPT [None]
